FAERS Safety Report 10037335 (Version 1)
Quarter: 2014Q1

REPORT INFORMATION
  Report Type: Spontaneous
  Country: US (occurrence: None)
  Receive Date: 20140325
  Receipt Date: 20140325
  Transmission Date: 20141002
  Serious: No
  Sender: FDA-Public Use
  Company Number: None

PATIENT
  Age: 56 Year
  Sex: Female
  Weight: 52.16 kg

DRUGS (3)
  1. DULOXETINE [Suspect]
     Dosage: 1 PILL
     Route: 048
     Dates: start: 20140318, end: 20140323
  2. OMEGA [Concomitant]
  3. SCHIFF GLUCOSAMINE PLUS VITAMIN D3 [Concomitant]

REACTIONS (3)
  - Headache [None]
  - Night sweats [None]
  - Crying [None]
